FAERS Safety Report 8803157 (Version 1)
Quarter: 2012Q4

REPORT INFORMATION
  Report Type: Report from Study
  Country: CA (occurrence: CA)
  Receive Date: 20120924
  Receipt Date: 20120924
  Transmission Date: 20130627
  Serious: Yes (Other)
  Sender: FDA-Public Use
  Company Number: CA-JNJFOC-20120906341

PATIENT
  Sex: Female
  Weight: 63.9 kg

DRUGS (3)
  1. REMICADE [Suspect]
     Indication: RHEUMATOID ARTHRITIS
     Route: 042
     Dates: start: 2012
  2. REMICADE [Suspect]
     Indication: RHEUMATOID ARTHRITIS
     Route: 042
     Dates: start: 201103
  3. METHOTREXATE [Concomitant]
     Route: 065

REACTIONS (2)
  - Panic attack [Not Recovered/Not Resolved]
  - Scab [Recovered/Resolved]
